FAERS Safety Report 4682987-5 (Version None)
Quarter: 2005Q2

REPORT INFORMATION
  Report Type: 
  Country: None (occurrence: None)
  Receive Date: 20050602
  Receipt Date: 20050321
  Transmission Date: 20051028
  Serious: No
  Sender: FDA-Public Use
  Company Number: USA050393698

PATIENT
  Age: 47 Year
  Sex: Female

DRUGS (4)
  1. CYMBALTA [Suspect]
     Indication: DEPRESSION
     Dosage: 30 MG/2 DAY
     Dates: start: 20050201
  2. ATIVAN [Concomitant]
  3. ANTIHISTAMINE [Concomitant]
  4. VITAMINS [Concomitant]

REACTIONS (2)
  - BLOOD PRESSURE INCREASED [None]
  - MIGRAINE [None]
